FAERS Safety Report 21161305 (Version 1)
Quarter: 2022Q3

REPORT INFORMATION
  Report Type: Spontaneous
  Country: US (occurrence: None)
  Receive Date: 20220802
  Receipt Date: 20220802
  Transmission Date: 20221027
  Serious: Yes (Hospitalization)
  Sender: FDA-Public Use
  Company Number: None

PATIENT
  Sex: Male
  Weight: 76.4 kg

DRUGS (9)
  1. METHOTREXATE [Suspect]
     Active Substance: METHOTREXATE
     Dates: end: 20220630
  2. PREDNISOLONE [Suspect]
     Active Substance: PREDNISOLONE
     Dates: end: 20220626
  3. VINCRISTINE SULFATE [Suspect]
     Active Substance: VINCRISTINE SULFATE
     Dates: end: 20220714
  4. CYTARABINE [Suspect]
     Active Substance: CYTARABINE
     Dates: end: 20220620
  5. DAUNORUBICIN [Suspect]
     Active Substance: DAUNORUBICIN
     Dates: end: 20220714
  6. ONCASPAR [Suspect]
     Active Substance: PEGASPARGASE
  7. AMLODIPINE [Concomitant]
     Active Substance: AMLODIPINE BESYLATE
  8. NABILONE [Concomitant]
     Active Substance: NABILONE
  9. ONDANSETRON [Concomitant]
     Active Substance: ONDANSETRON

REACTIONS (3)
  - Confusional state [None]
  - Seizure [None]
  - Electroencephalogram abnormal [None]

NARRATIVE: CASE EVENT DATE: 20220721
